FAERS Safety Report 19932093 (Version 1)
Quarter: 2021Q4

REPORT INFORMATION
  Report Type: Spontaneous
  Country: SE (occurrence: SE)
  Receive Date: 20211007
  Receipt Date: 20211007
  Transmission Date: 20220304
  Serious: Yes (Death)
  Sender: FDA-Public Use
  Company Number: None

PATIENT
  Age: 60 Year
  Sex: Female
  Weight: 70 kg

DRUGS (3)
  1. AVASTIN [Suspect]
     Active Substance: BEVACIZUMAB
     Indication: Cardiac failure high output
     Route: 042
     Dates: start: 202108, end: 202109
  2. AVASTIN [Suspect]
     Active Substance: BEVACIZUMAB
     Indication: Epistaxis
  3. AVASTIN [Suspect]
     Active Substance: BEVACIZUMAB
     Indication: Intestinal haemorrhage

REACTIONS (2)
  - Sepsis [Fatal]
  - Endocarditis [Fatal]

NARRATIVE: CASE EVENT DATE: 20210901
